FAERS Safety Report 8114794-5 (Version None)
Quarter: 2012Q1

REPORT INFORMATION
  Report Type: 
  Country: None (occurrence: None)
  Receive Date: 20120206
  Receipt Date: 20120124
  Transmission Date: 20120608
  Serious: Yes (Other)
  Sender: FDA-Public Use
  Company Number: US-ELI_LILLY_AND_COMPANY-US201108003746

PATIENT
  Sex: Male
  Weight: 95.3 kg

DRUGS (10)
  1. NIACIN [Concomitant]
  2. FORTEO [Suspect]
     Dosage: 20 UG, QD
     Route: 065
     Dates: start: 20110816
  3. DIGOXIN [Concomitant]
  4. COUMADIN [Concomitant]
  5. ALLOPURINOL [Concomitant]
  6. STOOL SOFTENER [Concomitant]
  7. FORTEO [Suspect]
     Indication: OSTEOPOROSIS
     Dosage: 20 UG, QD
     Route: 065
  8. LASIX [Concomitant]
  9. PROPAFENONE HCL [Concomitant]
  10. ASPIRIN [Concomitant]

REACTIONS (5)
  - ATRIAL FIBRILLATION [None]
  - HYPOTENSION [None]
  - LOSS OF CONSCIOUSNESS [None]
  - FOOD ALLERGY [None]
  - DIARRHOEA [None]
